FAERS Safety Report 6890223-4 (Version None)
Quarter: 2010Q3

REPORT INFORMATION
  Report Type: 
  Country: None (occurrence: None)
  Receive Date: 20100730
  Receipt Date: 20080909
  Transmission Date: 20110219
  Serious: No
  Sender: FDA-Public Use
  Company Number: US-PFIZER INC-2008075686

PATIENT
  Sex: Male
  Weight: 81.818 kg

DRUGS (4)
  1. LIPITOR [Suspect]
     Indication: BLOOD CHOLESTEROL INCREASED
     Route: 048
     Dates: start: 20070301
  2. LISINOPRIL [Concomitant]
  3. ZOLPIDEM [Concomitant]
  4. AMBIEN [Concomitant]

REACTIONS (3)
  - ARTHRALGIA [None]
  - BLOOD CHOLESTEROL DECREASED [None]
  - MEMORY IMPAIRMENT [None]
